FAERS Safety Report 9253839 (Version 1)
Quarter: 2013Q2

REPORT INFORMATION
  Report Type: Spontaneous
  Country: TW (occurrence: TW)
  Receive Date: 20130425
  Receipt Date: 20130425
  Transmission Date: 20140414
  Serious: Yes (Hospitalization)
  Sender: FDA-Public Use
  Company Number: TW-UCBSA-084183

PATIENT
  Age: 76 Year
  Sex: Male

DRUGS (17)
  1. OMEPRAZOLE [Suspect]
  2. DIGOXIN [Suspect]
  3. ADVAIR [Suspect]
     Route: 055
  4. ALBUTEROL [Suspect]
  5. PREDNISOLONE [Suspect]
  6. TAMSULOSIN HCL [Suspect]
  7. THEOPHYLLINE [Suspect]
  8. CIPROFLOXACIN [Suspect]
  9. PROCHLORPERAZINE [Suspect]
  10. POTASSIUM CHLORIDE [Suspect]
  11. FRUSEMIDE [Suspect]
  12. GLIPIZIDE [Suspect]
  13. SUCRALFATE [Suspect]
  14. AMITRIPTYLINE [Suspect]
  15. METOPROLOL [Suspect]
  16. VERAPAMIL [Suspect]
  17. DALIRESP [Suspect]

REACTIONS (7)
  - Arrhythmia [Unknown]
  - Haemorrhage [Not Recovered/Not Resolved]
  - Stent placement [Unknown]
  - Arterial occlusive disease [Unknown]
  - Dyspnoea [Unknown]
  - Tremor [Unknown]
  - Heart rate increased [Unknown]
